FAERS Safety Report 21850246 (Version 2)
Quarter: 2023Q1

REPORT INFORMATION
  Report Type: Report from Study
  Country: IL (occurrence: IL)
  Receive Date: 20230111
  Receipt Date: 20230201
  Transmission Date: 20230418
  Serious: Yes (Death, Hospitalization)
  Sender: FDA-Public Use
  Company Number: IL-ABBVIE-22K-082-4485941-00

PATIENT
  Age: 77 Year
  Sex: Male
  Weight: 70 kg

DRUGS (45)
  1. VENETOCLAX [Suspect]
     Active Substance: VENETOCLAX
     Indication: Chronic lymphocytic leukaemia
     Dosage: 20 MG, DOSE INCREASE ACCORDING TO VENETOCLAX DOSE TITRATION SCHEME
     Route: 048
     Dates: start: 20211121, end: 20211127
  2. VENETOCLAX [Suspect]
     Active Substance: VENETOCLAX
     Indication: Chronic lymphocytic leukaemia
     Dosage: 50 MG, DOSE INCREASE ACCORDING TO VENETOCLAX DOSE TITRATION SCHEME
     Route: 048
     Dates: start: 20211128, end: 20211204
  3. VENETOCLAX [Suspect]
     Active Substance: VENETOCLAX
     Indication: Chronic lymphocytic leukaemia
     Dosage: 100 MG, DOSE INCREASE ACCORDING TO VENETOCLAX DOSE TITRATION SCHEME
     Route: 048
     Dates: start: 20211205, end: 20211211
  4. VENETOCLAX [Suspect]
     Active Substance: VENETOCLAX
     Indication: Chronic lymphocytic leukaemia
     Dosage: 200 MG, DOSE INCREASE ACCORDING TO VENETOCLAX DOSE TITRATION SCHEME
     Route: 048
     Dates: start: 20211212, end: 20211217
  5. VENETOCLAX [Suspect]
     Active Substance: VENETOCLAX
     Indication: Chronic lymphocytic leukaemia
     Dosage: 400 MG, INTERRUPTION ADVERSE EVENT
     Route: 048
     Dates: start: 20211219, end: 20220101
  6. VENETOCLAX [Suspect]
     Active Substance: VENETOCLAX
     Indication: Chronic lymphocytic leukaemia
     Dosage: INTERRUPTION ADVERSE EVENT
     Route: 048
     Dates: start: 20220102, end: 20220302
  7. VENETOCLAX [Suspect]
     Active Substance: VENETOCLAX
     Indication: Chronic lymphocytic leukaemia
     Dosage: 200 MG, INTERRUPTION ADVERSE EVENT
     Route: 048
     Dates: start: 20220315, end: 20220328
  8. VENETOCLAX [Suspect]
     Active Substance: VENETOCLAX
     Indication: Chronic lymphocytic leukaemia
     Dosage: 200 MG, INTERRUPTION TREATMENT COMPLETION
     Route: 048
     Dates: start: 20220404, end: 20220616
  9. VENETOCLAX [Suspect]
     Active Substance: VENETOCLAX
     Indication: Chronic lymphocytic leukaemia
     Dosage: 300 MG
     Route: 048
     Dates: start: 20220702
  10. OBINUTUZUMAB [Suspect]
     Active Substance: OBINUTUZUMAB
     Indication: Chronic lymphocytic leukaemia
     Dosage: 1000 MG
     Route: 065
     Dates: start: 20211028, end: 20211028
  11. OBINUTUZUMAB [Suspect]
     Active Substance: OBINUTUZUMAB
     Indication: Chronic lymphocytic leukaemia
     Dosage: 1000 MG
     Route: 065
     Dates: start: 20211108, end: 20211108
  12. OBINUTUZUMAB [Suspect]
     Active Substance: OBINUTUZUMAB
     Indication: Chronic lymphocytic leukaemia
     Dosage: 1000 MG
     Route: 065
     Dates: start: 20211115, end: 20211115
  13. OBINUTUZUMAB [Suspect]
     Active Substance: OBINUTUZUMAB
     Indication: Chronic lymphocytic leukaemia
     Route: 065
     Dates: start: 20211205, end: 20211205
  14. OBINUTUZUMAB [Suspect]
     Active Substance: OBINUTUZUMAB
     Indication: Chronic lymphocytic leukaemia
     Dosage: 1000 MG
     Route: 065
     Dates: start: 20220105, end: 20220105
  15. OBINUTUZUMAB [Suspect]
     Active Substance: OBINUTUZUMAB
     Indication: Chronic lymphocytic leukaemia
     Dosage: 1000 MG
     Route: 065
     Dates: start: 20220202, end: 20220202
  16. OBINUTUZUMAB [Suspect]
     Active Substance: OBINUTUZUMAB
     Indication: Chronic lymphocytic leukaemia
     Route: 065
     Dates: start: 20220525, end: 20220525
  17. OBINUTUZUMAB [Suspect]
     Active Substance: OBINUTUZUMAB
     Indication: Chronic lymphocytic leukaemia
     Dosage: CYCLE 6
     Route: 065
     Dates: start: 20220309, end: 20220309
  18. OBINUTUZUMAB [Suspect]
     Active Substance: OBINUTUZUMAB
     Indication: Chronic lymphocytic leukaemia
     Dosage: 1000 MG
     Route: 065
     Dates: start: 20220606, end: 20220606
  19. ATACAND [Concomitant]
     Active Substance: CANDESARTAN CILEXETIL
     Indication: Hypertension
     Dates: start: 20160228
  20. GLUCOPHAGE [Concomitant]
     Active Substance: METFORMIN HYDROCHLORIDE
     Indication: Type 2 diabetes mellitus
     Dates: start: 20160228
  21. SIMVASTATIN [Concomitant]
     Active Substance: SIMVASTATIN
     Indication: Blood cholesterol increased
     Dates: start: 20160228
  22. ALLOPURINOL [Concomitant]
     Active Substance: ALLOPURINOL
     Indication: Prophylaxis
     Dates: start: 20211017, end: 20211017
  23. ALLOPURINOL [Concomitant]
     Active Substance: ALLOPURINOL
     Indication: Prophylaxis
     Dates: start: 20211017, end: 20211017
  24. ALLOPURINOL [Concomitant]
     Active Substance: ALLOPURINOL
     Indication: Prophylaxis
     Dates: start: 20211017
  25. MEDROL [Concomitant]
     Active Substance: METHYLPREDNISOLONE
     Indication: Allergy prophylaxis
     Dates: start: 20211028, end: 20211028
  26. MEDROL [Concomitant]
     Active Substance: METHYLPREDNISOLONE
     Indication: Allergy prophylaxis
     Dates: start: 20211115, end: 20211115
  27. MEDROL [Concomitant]
     Active Substance: METHYLPREDNISOLONE
     Indication: Allergy prophylaxis
     Dates: start: 20211027, end: 20211027
  28. MEDROL [Concomitant]
     Active Substance: METHYLPREDNISOLONE
     Indication: Allergy prophylaxis
     Dates: start: 20211108, end: 20211108
  29. Abrol [Concomitant]
     Indication: Allergy prophylaxis
     Dates: start: 20211115, end: 20211115
  30. Abrol [Concomitant]
     Indication: Allergy prophylaxis
     Dates: start: 20211027, end: 20211027
  31. Abrol [Concomitant]
     Indication: Allergy prophylaxis
     Dates: start: 20211028, end: 20211028
  32. Abrol [Concomitant]
     Indication: Allergy prophylaxis
     Dates: start: 20211108, end: 20211108
  33. PROTHIAZINE [Concomitant]
     Indication: Allergy prophylaxis
     Dates: start: 20211027, end: 20211027
  34. PROTHIAZINE [Concomitant]
     Indication: Allergy prophylaxis
     Dates: start: 20211028, end: 20211028
  35. PROTHIAZINE [Concomitant]
     Indication: Allergy prophylaxis
     Dates: start: 20211115, end: 20211115
  36. PROTHIAZINE [Concomitant]
     Indication: Allergy prophylaxis
     Dates: start: 20211108, end: 20211108
  37. ZOVIRAX [Concomitant]
     Active Substance: ACYCLOVIR
     Indication: Infection
     Dosage: 400 MGX2
     Dates: start: 20220105, end: 20220202
  38. GLUCOPHAGE [Concomitant]
     Active Substance: METFORMIN HYDROCHLORIDE
     Indication: Type 2 diabetes mellitus
     Dates: start: 20160228
  39. GLUCOPHAGE [Concomitant]
     Active Substance: METFORMIN HYDROCHLORIDE
     Indication: Type 2 diabetes mellitus
     Dates: start: 20160228
  40. Alluporinolo [Concomitant]
     Indication: Gout
     Dates: start: 20211027, end: 20211027
  41. Alluporinolo [Concomitant]
     Indication: Gout
     Dates: start: 20211028, end: 20211028
  42. Alluporinolo [Concomitant]
     Indication: Gout
     Dates: start: 20211213
  43. Alluporinolo [Concomitant]
     Indication: Gout
     Dates: start: 20211213
  44. Alluporinolo [Concomitant]
     Indication: Gout
     Dates: start: 20211028, end: 20211028
  45. Alluporinolo [Concomitant]
     Indication: Gout
     Dates: start: 20211027, end: 20211027

REACTIONS (7)
  - Endocarditis [Fatal]
  - Platelet count decreased [Recovered/Resolved]
  - Neutrophil count decreased [Recovered/Resolved]
  - Neutropenia [Recovered/Resolved]
  - Neutropenia [Recovered/Resolved]
  - COVID-19 [Recovered/Resolved]
  - Gout [Recovered/Resolved]

NARRATIVE: CASE EVENT DATE: 20220302
